FAERS Safety Report 6933737-0 (Version None)
Quarter: 2010Q3

REPORT INFORMATION
  Report Type: 
  Country: None (occurrence: None)
  Receive Date: 20100820
  Receipt Date: 20100818
  Transmission Date: 20110219
  Serious: Yes (Life-Threatening, Hospitalization, Other)
  Sender: FDA-Public Use
  Company Number: PL-ROXANE LABORATORIES, INC.-2010-RO-01106RO

PATIENT
  Age: 31 Year
  Sex: Female

DRUGS (4)
  1. CLARITHROMYCIN [Suspect]
     Indication: PHARYNGITIS
  2. DEXAMETHASONE [Suspect]
     Indication: TOXIC EPIDERMAL NECROLYSIS
     Dosage: 24 MG
  3. SULPHASALZINE [Suspect]
  4. OMEPRAZOLE [Suspect]
     Indication: PHARYNGITIS

REACTIONS (3)
  - DRUG INEFFECTIVE FOR UNAPPROVED INDICATION [None]
  - STAPHYLOCOCCAL SEPSIS [None]
  - TOXIC EPIDERMAL NECROLYSIS [None]
